FAERS Safety Report 4898520-9 (Version None)
Quarter: 2006Q1

REPORT INFORMATION
  Report Type: 
  Country: None (occurrence: None)
  Receive Date: 20060130
  Receipt Date: 20060117
  Transmission Date: 20060701
  Serious: Yes (Hospitalization, Other)
  Sender: FDA-Public Use
  Company Number: 2005099374

PATIENT
  Age: 68 Year
  Sex: Female
  Weight: 63.5036 kg

DRUGS (9)
  1. DILANTIN [Suspect]
     Indication: CONVULSION PROPHYLAXIS
     Dosage: 300 MG (100 MG, 3 IN 1 D),
     Dates: start: 20031101
  2. NEURONTIN [Suspect]
     Indication: CONVULSION
     Dates: start: 20031101, end: 20050106
  3. LYRICA [Suspect]
     Indication: SIMPLE PARTIAL SEIZURES
     Dosage: 200 MG (100 MG, 2 IN 1 D), UNKNOWN
     Dates: start: 20051201
  4. TRILEPTAL [Suspect]
     Indication: CONVULSION
     Dates: start: 20040301, end: 20050202
  5. KEPPRA [Suspect]
     Indication: ILL-DEFINED DISORDER
     Dates: start: 20040301, end: 20050202
  6. TOPAMAX [Suspect]
     Indication: CONVULSION
  7. ZETIA [Concomitant]
  8. ZOCOR [Concomitant]
  9. ASPIRIN [Concomitant]

REACTIONS (10)
  - ARTHRITIS [None]
  - ASTHENIA [None]
  - CONDITION AGGRAVATED [None]
  - CONVULSION [None]
  - DISTURBANCE IN ATTENTION [None]
  - DRY MOUTH [None]
  - EYE IRRITATION [None]
  - FEELING ABNORMAL [None]
  - LOW DENSITY LIPOPROTEIN INCREASED [None]
  - SIMPLE PARTIAL SEIZURES [None]
